FAERS Safety Report 8234131-5 (Version None)
Quarter: 2012Q1

REPORT INFORMATION
  Report Type: 
  Country: None (occurrence: None)
  Receive Date: 20120326
  Receipt Date: 20120314
  Transmission Date: 20120608
  Serious: Yes (Hospitalization, Other)
  Sender: FDA-Public Use
  Company Number: US-MYLANLABS-2012S1006248

PATIENT
  Sex: Male
  Weight: 85.28 kg

DRUGS (18)
  1. ALBUTEROL [Concomitant]
  2. KLOR-CON [Concomitant]
  3. MILK OF MAGNESIA TAB [Concomitant]
  4. ADVAIR DISKUS 100/50 [Concomitant]
     Dosage: 500/15 INHALER
  5. ASPIRIN [Concomitant]
  6. ATROVENT [Concomitant]
  7. SOLU-MEDROL [Concomitant]
  8. LASIX [Concomitant]
  9. LEVAQUIN [Concomitant]
  10. POTASSIUM [Concomitant]
  11. AMIODARONE HYDROCHLORIDE [Concomitant]
  12. OXYCODONE HCL [Concomitant]
  13. PREDNISONE [Concomitant]
  14. LOPRESSOR [Concomitant]
  15. NITROGLYCERIN [Concomitant]
  16. PERCOCET [Concomitant]
  17. PRILOSEC [Concomitant]
  18. DIGOXIN [Suspect]
     Indication: PRODUCT USED FOR UNKNOWN INDICATION
     Dates: start: 20070109, end: 20080701

REACTIONS (67)
  - PLEURAL EFFUSION [None]
  - BUNDLE BRANCH BLOCK RIGHT [None]
  - ASTHMA [None]
  - AORTIC VALVE REPLACEMENT [None]
  - URINARY INCONTINENCE [None]
  - HAEMATOCHEZIA [None]
  - ATRIAL FIBRILLATION [None]
  - GASTROINTESTINAL HAEMORRHAGE [None]
  - WHEEZING [None]
  - COUGH [None]
  - RENAL FAILURE CHRONIC [None]
  - HIATUS HERNIA [None]
  - DYSURIA [None]
  - HEART RATE IRREGULAR [None]
  - BREATH SOUNDS ABNORMAL [None]
  - CARDIOMYOPATHY [None]
  - PULMONARY OEDEMA [None]
  - ANAL HAEMORRHAGE [None]
  - ORTHOPNOEA [None]
  - CHEST DISCOMFORT [None]
  - CHEST PAIN [None]
  - CARDIAC PACEMAKER INSERTION [None]
  - POLLAKIURIA [None]
  - TERMINAL DRIBBLING [None]
  - LEFT VENTRICULAR DYSFUNCTION [None]
  - COLITIS [None]
  - BARRETT'S OESOPHAGUS [None]
  - ATELECTASIS [None]
  - RECTAL HAEMORRHAGE [None]
  - DYSPNOEA [None]
  - AORTIC VALVE STENOSIS [None]
  - GASTROOESOPHAGEAL REFLUX DISEASE [None]
  - BENIGN PROSTATIC HYPERPLASIA [None]
  - CATHETERISATION CARDIAC [None]
  - ASTHENIA [None]
  - TACHYPNOEA [None]
  - CARDIAC FAILURE CONGESTIVE [None]
  - VENTRICULAR ARRHYTHMIA [None]
  - DYSPNOEA EXERTIONAL [None]
  - LUNG DISORDER [None]
  - ANGIOPATHY [None]
  - HYPOKALAEMIA [None]
  - RESPIRATORY DISORDER [None]
  - PULMONARY FUNCTION TEST ABNORMAL [None]
  - EDENTULOUS [None]
  - CARDIAC MURMUR [None]
  - INTRACARDIAC THROMBUS [None]
  - OEDEMA PERIPHERAL [None]
  - PLEURITIC PAIN [None]
  - JUGULAR VEIN DISTENSION [None]
  - HYPOKINESIA [None]
  - ANAEMIA OF CHRONIC DISEASE [None]
  - TRANSFUSION [None]
  - SYNCOPE [None]
  - PULMONARY HYPERTENSION [None]
  - CARDIOMEGALY [None]
  - CHRONIC OBSTRUCTIVE PULMONARY DISEASE [None]
  - ABDOMINAL PAIN [None]
  - LUNG INFILTRATION [None]
  - HYPOTENSION [None]
  - MITRAL VALVE INCOMPETENCE [None]
  - PRODUCTIVE COUGH [None]
  - BRONCHITIS [None]
  - DEHYDRATION [None]
  - HYPERTENSION [None]
  - URINARY TRACT INFECTION [None]
  - RALES [None]
